FAERS Safety Report 8229250-3 (Version None)
Quarter: 2012Q1

REPORT INFORMATION
  Report Type: 
  Country: None (occurrence: None)
  Receive Date: 20120322
  Receipt Date: 20120316
  Transmission Date: 20120608
  Serious: Yes (Other)
  Sender: FDA-Public Use
  Company Number: US-JNJFOC-20120309497

PATIENT
  Age: 55 Year
  Sex: Female
  Weight: 52.62 kg

DRUGS (4)
  1. PRECISE EXTRA STRENGTH PAIN RELIEVING CREAM [Suspect]
     Indication: BACK PAIN
     Dosage: ^LITTLE DALLOP^
     Route: 061
     Dates: start: 20120210, end: 20120210
  2. VICODIN [Concomitant]
     Indication: PAIN MANAGEMENT
     Route: 065
  3. MARINOL [Concomitant]
     Indication: NAUSEA
     Route: 065
  4. MORPHINE [Concomitant]
     Indication: PAIN MANAGEMENT
     Route: 065

REACTIONS (3)
  - APPLICATION SITE BURN [None]
  - APPLICATION SITE VESICLES [None]
  - APPLICATION SITE PAIN [None]
